FAERS Safety Report 6295743-1 (Version None)
Quarter: 2009Q3

REPORT INFORMATION
  Report Type: 
  Country: None (occurrence: None)
  Receive Date: 20090731
  Receipt Date: 20090724
  Transmission Date: 20100115
  Serious: Yes (Hospitalization)
  Sender: FDA-Public Use
  Company Number: US025027

PATIENT
  Age: 57 Year
  Sex: Male
  Weight: 68.3117 kg

DRUGS (16)
  1. FENTORA [Suspect]
     Indication: CANCER PAIN
     Dosage: (400 MCG, 400 MCG EVERY 6 HOURS AS NEEDED), BU
     Route: 002
     Dates: start: 20080903, end: 20081004
  2. FENTORA [Suspect]
     Indication: CANCER PAIN
     Dosage: (400 MCG, 400 MCG EVERY 6 HOURS AS NEEDED), BU
     Route: 002
     Dates: start: 20081004, end: 20081013
  3. FENTORA [Suspect]
     Indication: CANCER PAIN
     Dosage: (400 MCG, 400 MCG EVERY 6 HOURS AS NEEDED), BU
     Route: 002
     Dates: start: 20081016
  4. ERLOTINIB (ERLOTINIB) [Concomitant]
  5. BLINDED INVESTIGATIONAL PRODUCT (INVESTIGATIONAL DRUG) [Concomitant]
  6. COMPAZINE [Concomitant]
  7. SENOKOT (SENNA ALEXANDRINA) [Concomitant]
  8. FLEET ENEMA (PARAFFIN, LIQUID) [Concomitant]
  9. GABAPENTIN [Concomitant]
  10. OMEPRAZOLE [Concomitant]
  11. OXYCONTIN [Concomitant]
  12. PERCOCET [Concomitant]
  13. METHADONE HCL [Concomitant]
  14. XANAX [Concomitant]
  15. REMERON [Concomitant]
  16. MARINOL [Concomitant]

REACTIONS (4)
  - CHEST PAIN [None]
  - DRUG PRESCRIBING ERROR [None]
  - FAECALOMA [None]
  - VOMITING [None]
